FAERS Safety Report 8858682 (Version 1)
Quarter: 2012Q4

REPORT INFORMATION
  Report Type: 
  Country: US (occurrence: US)
  Receive Date: 20121024
  Receipt Date: 20121024
  Transmission Date: 20130627
  Serious: Yes (Other)
  Sender: FDA-Public Use
  Company Number: US-PFIZER INC-2012265825

PATIENT
  Age: 34 Year
  Sex: Male
  Weight: 83.9 kg

DRUGS (4)
  1. PRISTIQ [Suspect]
     Indication: PANIC ATTACK
     Dosage: 100 mg, 2x/day
     Dates: start: 2012, end: 201210
  2. PRISTIQ [Suspect]
     Indication: ANXIETY
  3. XANAX [Suspect]
     Indication: PANIC ATTACK
     Dosage: UNK
  4. KLONOPIN [Concomitant]
     Dosage: 2 mg, 2x/day

REACTIONS (4)
  - Drug ineffective [Not Recovered/Not Resolved]
  - Nervousness [Not Recovered/Not Resolved]
  - Anxiety [Not Recovered/Not Resolved]
  - Panic reaction [Not Recovered/Not Resolved]
